FAERS Safety Report 7372424-4 (Version None)
Quarter: 2011Q1

REPORT INFORMATION
  Report Type: 
  Country: None (occurrence: None)
  Receive Date: 20110324
  Receipt Date: 20110321
  Transmission Date: 20110831
  Serious: Yes (Hospitalization)
  Sender: FDA-Public Use
  Company Number: PR-ABBOTT-11P-131-0702289-00

PATIENT
  Sex: Female
  Weight: 63.56 kg

DRUGS (14)
  1. AMBIEN [Concomitant]
     Indication: SLEEP DISORDER THERAPY
     Route: 048
  2. FIORICET [Concomitant]
     Indication: PAIN
     Route: 048
  3. NAPROXEN [Concomitant]
     Indication: PAIN
     Route: 048
  4. CITALOPRAM HYDROBROMIDE [Concomitant]
     Indication: DEPRESSION
     Route: 048
  5. ULTRACET [Concomitant]
     Indication: PRODUCT USED FOR UNKNOWN INDICATION
  6. AMITRIPTYLINE [Concomitant]
     Indication: PAIN
     Route: 048
  7. GABAPENTIN [Concomitant]
     Indication: PAIN
     Route: 048
  8. HUMIRA [Suspect]
     Indication: FIBROMYALGIA
  9. PREVACID [Concomitant]
     Indication: PRODUCT USED FOR UNKNOWN INDICATION
     Route: 048
  10. TRAMADOL 37.5MG/ACETAMINOPHEN 325MG [Concomitant]
     Indication: PAIN
     Route: 048
  11. AMOXIL [Concomitant]
     Indication: INFECTION
     Route: 048
  12. HUMIRA [Suspect]
     Indication: PSORIATIC ARTHROPATHY
     Route: 058
     Dates: start: 20090101, end: 20101209
  13. CLINORIL [Concomitant]
     Indication: RHEUMATOID ARTHRITIS
     Route: 048
  14. HUMIRA [Suspect]
     Indication: RHEUMATOID ARTHRITIS

REACTIONS (21)
  - MAJOR DEPRESSION [None]
  - BONE PAIN [None]
  - MUSCULOSKELETAL PAIN [None]
  - PAIN [None]
  - POOR QUALITY SLEEP [None]
  - CHILLS [None]
  - ABNORMAL BEHAVIOUR [None]
  - AGGRESSION [None]
  - SUICIDE ATTEMPT [None]
  - BACK PAIN [None]
  - INTENTIONAL OVERDOSE [None]
  - BONE DENSITY DECREASED [None]
  - SUICIDAL IDEATION [None]
  - NAUSEA [None]
  - GINGIVAL BLEEDING [None]
  - FATIGUE [None]
  - NECK PAIN [None]
  - HEADACHE [None]
  - DECREASED APPETITE [None]
  - CONDITION AGGRAVATED [None]
  - PERIODONTAL DISEASE [None]
